FAERS Safety Report 19155191 (Version 2)
Quarter: 2021Q2

REPORT INFORMATION
  Report Type: Report from Study
  Country: NL (occurrence: NL)
  Receive Date: 20210420
  Receipt Date: 20210519
  Transmission Date: 20210717
  Serious: Yes (Hospitalization, Other)
  Sender: FDA-Public Use
  Company Number: NL-SA-2021SA122451

PATIENT

DRUGS (2)
  1. ALGLUCOSIDASE ALFA [Suspect]
     Active Substance: ALGLUCOSIDASE ALFA
     Indication: GLYCOGEN STORAGE DISEASE TYPE II
     Dosage: UNK
     Route: 041
     Dates: start: 20180216
  2. COVID?19 VACCINE NOS. [Concomitant]
     Active Substance: COVID-19 VACCINE NOS
     Dosage: UNK
     Dates: start: 20210403

REACTIONS (7)
  - Feeling cold [Recovered/Resolved]
  - Dizziness [Recovered/Resolved]
  - Condition aggravated [Unknown]
  - Oxygen saturation decreased [Unknown]
  - Altered state of consciousness [Recovered/Resolved]
  - Respiratory muscle weakness [Unknown]
  - Cardiac dysfunction [Unknown]

NARRATIVE: CASE EVENT DATE: 20210409
